FAERS Safety Report 15682569 (Version 2)
Quarter: 2019Q1

REPORT INFORMATION
  Report Type: Spontaneous
  Country: US (occurrence: US)
  Receive Date: 20181203
  Receipt Date: 20190318
  Transmission Date: 20190417
  Serious: Yes (Hospitalization, Other)
  Sender: FDA-Public Use
  Company Number: US-OTSUKA-2018_025137

PATIENT
  Sex: Female

DRUGS (8)
  1. ABILIFY [Suspect]
     Active Substance: ARIPIPRAZOLE
     Indication: SCHIZOPHRENIA
     Dosage: UNK
     Route: 065
  2. ABILIFY [Suspect]
     Active Substance: ARIPIPRAZOLE
     Indication: POST-TRAUMATIC STRESS DISORDER
  3. ABILIFY [Suspect]
     Active Substance: ARIPIPRAZOLE
     Indication: ANXIETY
  4. ABILIFY [Suspect]
     Active Substance: ARIPIPRAZOLE
     Indication: ATTENTION DEFICIT/HYPERACTIVITY DISORDER
  5. ABILIFY [Suspect]
     Active Substance: ARIPIPRAZOLE
     Indication: ALCOHOL USE
  6. ABILIFY [Suspect]
     Active Substance: ARIPIPRAZOLE
     Indication: PERSONALITY DISORDER
  7. ABILIFY [Suspect]
     Active Substance: ARIPIPRAZOLE
     Indication: MAJOR DEPRESSION
  8. ABILIFY [Suspect]
     Active Substance: ARIPIPRAZOLE
     Indication: SUBSTANCE ABUSE

REACTIONS (8)
  - Suicide attempt [Recovered/Resolved]
  - Product use in unapproved indication [Unknown]
  - Obsessive-compulsive disorder [Unknown]
  - Economic problem [Unknown]
  - Suicidal ideation [Recovered/Resolved]
  - Compulsive shopping [Recovered/Resolved]
  - Mental disorder [Unknown]
  - Gambling disorder [Recovered/Resolved]
